FAERS Safety Report 10207074 (Version 1)
Quarter: 2014Q2

REPORT INFORMATION
  Report Type: Spontaneous
  Country: US (occurrence: US)
  Receive Date: 20140530
  Receipt Date: 20140530
  Transmission Date: 20141212
  Serious: Yes (Other)
  Sender: FDA-Public Use
  Company Number: US-ELI_LILLY_AND_COMPANY-US201405006505

PATIENT
  Sex: Male

DRUGS (3)
  1. HUMULIN 30% REGULAR, 70% NPH [Suspect]
     Indication: TYPE 2 DIABETES MELLITUS
     Dosage: 50 U, TID
     Route: 065
     Dates: start: 2006, end: 201405
  2. PLAVIX [Concomitant]
  3. WATER PILLS [Concomitant]

REACTIONS (5)
  - Retinal haemorrhage [Unknown]
  - Blindness [Unknown]
  - Cataract [Unknown]
  - Dyslexia [Unknown]
  - Blood glucose increased [Unknown]
